FAERS Safety Report 15932118 (Version 1)
Quarter: 2019Q1

REPORT INFORMATION
  Report Type: Spontaneous
  Country: US (occurrence: US)
  Receive Date: 20190207
  Receipt Date: 20190207
  Transmission Date: 20190417
  Serious: Yes (Other)
  Sender: FDA-Public Use
  Company Number: None

PATIENT
  Age: 40 Year
  Sex: Male
  Weight: 116.4 kg

DRUGS (6)
  1. PROPOFOL. [Concomitant]
     Active Substance: PROPOFOL
     Dates: start: 20190205, end: 20190205
  2. NOREPINEPHRINE. [Concomitant]
     Active Substance: NOREPINEPHRINE
     Dates: start: 20190205, end: 20190205
  3. FENTANYL. [Concomitant]
     Active Substance: FENTANYL
     Dates: start: 20190205, end: 20190205
  4. MIDAZOLAM [Concomitant]
     Active Substance: MIDAZOLAM HYDROCHLORIDE
     Dates: start: 20190205, end: 20190205
  5. PHENYLEPHRINE [Concomitant]
     Active Substance: PHENYLEPHRINE\PHENYLEPHRINE HYDROCHLORIDE
     Dates: start: 20190205, end: 20190205
  6. ROCURONIUM [Suspect]
     Active Substance: ROCURONIUM BROMIDE
     Indication: PARALYSIS
     Route: 042
     Dates: start: 20190205, end: 20190205

REACTIONS (1)
  - Drug effect incomplete [None]

NARRATIVE: CASE EVENT DATE: 20190205
